FAERS Safety Report 9377555 (Version 5)
Quarter: 2013Q4

REPORT INFORMATION
  Report Type: Spontaneous
  Country: US (occurrence: US)
  Receive Date: 20130701
  Receipt Date: 20131230
  Transmission Date: 20140711
  Serious: No
  Sender: FDA-Public Use
  Company Number: US-PFIZER INC-2013192478

PATIENT
  Sex: Female

DRUGS (2)
  1. CELEBREX [Suspect]
     Indication: ARTHRITIS
     Dosage: UNK
     Dates: start: 2000, end: 2002
  2. CELEBREX [Suspect]
     Indication: OSTEOARTHRITIS

REACTIONS (2)
  - Gastrointestinal disorder [Unknown]
  - Liver disorder [Unknown]
